FAERS Safety Report 10977247 (Version 1)
Quarter: 2015Q1

REPORT INFORMATION
  Report Type: Spontaneous
  Country: DE (occurrence: None)
  Receive Date: 20150330
  Receipt Date: 20150330
  Transmission Date: 20150721
  Serious: Yes (Life-Threatening)
  Sender: FDA-Public Use
  Company Number: DE-H14001-15-00492

PATIENT
  Age: 67 Year
  Sex: Female
  Weight: 90 kg

DRUGS (3)
  1. AMIODARON (AMIODARONE) (UNKNOWN) (AMIODARONE) [Suspect]
     Active Substance: AMIODARONE
     Indication: ATRIAL FIBRILLATION
     Dosage: 600 MG (200 MG, 3 IN 1 D)
     Dates: start: 20141218, end: 20141222
  2. BISOPROLOL [Concomitant]
     Active Substance: BISOPROLOL
  3. NIFEDIPIN RETARD [Concomitant]

REACTIONS (10)
  - Abdominal pain upper [None]
  - Nausea [None]
  - Tachyarrhythmia [None]
  - Muscular weakness [None]
  - Dizziness [None]
  - Cheyne-Stokes respiration [None]
  - Condition aggravated [None]
  - Insomnia [None]
  - Ataxia [None]
  - Respiratory distress [None]

NARRATIVE: CASE EVENT DATE: 20141218
